FAERS Safety Report 4609923-1 (Version None)
Quarter: 2005Q1

REPORT INFORMATION
  Report Type: 
  Country: None (occurrence: None)
  Receive Date: 20050314
  Receipt Date: 20050314
  Transmission Date: 20050727
  Serious: Yes (Hospitalization)
  Sender: FDA-Public Use
  Company Number: None

PATIENT
  Age: 79 Year
  Sex: Male

DRUGS (16)
  1. DIGOXIN [Suspect]
     Indication: CARDIAC DISORDER
     Dosage: 0.125 MG QD
     Dates: start: 19970301
  2. METOPROLOL [Suspect]
     Indication: HYPERTENSION
     Dosage: 25 MG BID
     Dates: start: 19950401
  3. DILTIAZEM [Suspect]
     Indication: CARDIAC DISORDER
     Dosage: 300 MG QD
     Dates: start: 19970401
  4. GLYBURIDE [Concomitant]
  5. OSCAL [Concomitant]
  6. MEGESTROL [Concomitant]
  7. NIFEDIPINE [Concomitant]
  8. NITROGLYCERIN [Concomitant]
  9. PLAVIX [Concomitant]
  10. ISOSORBIDE [Concomitant]
  11. THEOPHYLLINE [Concomitant]
  12. DSS [Concomitant]
  13. SERTRALINE HCL [Concomitant]
  14. HYDRALAZINE [Concomitant]
  15. ASPIRIN [Concomitant]
  16. OMEPRAZOLE [Concomitant]

REACTIONS (1)
  - BRADYCARDIA [None]
